FAERS Safety Report 6852976-0 (Version None)
Quarter: 2010Q3

REPORT INFORMATION
  Report Type: 
  Country: None (occurrence: None)
  Receive Date: 20100717
  Receipt Date: 20071128
  Transmission Date: 20110219
  Serious: No
  Sender: FDA-Public Use
  Company Number: US-PFIZER INC-2007101448

PATIENT
  Sex: Male
  Weight: 61.363 kg

DRUGS (13)
  1. CHANTIX [Suspect]
     Indication: SMOKING CESSATION THERAPY
     Dates: start: 20070901, end: 20071110
  2. ACETYLSALICYLIC ACID [Concomitant]
  3. ZOCOR [Concomitant]
  4. TAMSULOSIN HYDROCHLORIDE [Concomitant]
  5. NEXIUM [Concomitant]
  6. CALCIUM [Concomitant]
  7. LASIX [Concomitant]
  8. LOPRESSOR [Concomitant]
  9. POTASSIUM CHLORIDE [Concomitant]
  10. VALSARTAN [Concomitant]
  11. DIGOXIN [Concomitant]
  12. MORPHINE SULFATE [Concomitant]
  13. TYLENOL [Concomitant]

REACTIONS (3)
  - CONSTIPATION [None]
  - FEELING JITTERY [None]
  - INCORRECT DOSE ADMINISTERED [None]
